FAERS Safety Report 6291058-6 (Version None)
Quarter: 2009Q3

REPORT INFORMATION
  Report Type: 
  Country: None (occurrence: None)
  Receive Date: 20090730
  Receipt Date: 20090721
  Transmission Date: 20100115
  Serious: Yes (Other)
  Sender: FDA-Public Use
  Company Number: US-PFIZER INC-2008157341

PATIENT
  Sex: Female

DRUGS (4)
  1. NEURONTIN [Suspect]
     Dosage: UNK
     Dates: end: 20080101
  2. REBIF [Suspect]
     Indication: MULTIPLE SCLEROSIS
     Dosage: 44 UG, 3 TIMES A WEEK
     Route: 058
     Dates: start: 20080430
  3. EXTRA STRENGTH TYLENOL [Concomitant]
     Indication: PREMEDICATION
     Dosage: UNK
  4. VITAMIN TAB [Concomitant]
     Indication: ANAEMIA
     Dosage: UNK

REACTIONS (2)
  - ARRHYTHMIA [None]
  - VENTRICULAR EXTRASYSTOLES [None]
